FAERS Safety Report 5747735-6 (Version None)
Quarter: 2008Q2

REPORT INFORMATION
  Report Type: 
  Country: None (occurrence: None)
  Receive Date: 20080523
  Receipt Date: 20070716
  Transmission Date: 20081010
  Serious: No
  Sender: FDA-Public Use
  Company Number: US-BAYER-200711759BWH

PATIENT
  Age: 80 Year
  Sex: Female
  Weight: 75 kg

DRUGS (15)
  1. PRECOSE [Suspect]
     Indication: DIABETES MELLITUS
     Dosage: TOTAL DAILY DOSE: 75 MG
     Dates: start: 20070524, end: 20070605
  2. METFORMIN HCL [Concomitant]
  3. METFORMIN HCL [Concomitant]
  4. METFORMIN HCL [Concomitant]
  5. GLYBURIDE [Concomitant]
  6. FERROUS SULFATE TAB [Concomitant]
     Dates: start: 20070127
  7. MULTI-VITAMIN [Concomitant]
  8. QUINAPRIL [Concomitant]
  9. ATENOLOL [Concomitant]
  10. HYDROCHLOROT [Concomitant]
  11. LIPITOR [Concomitant]
  12. ASPIRIN [Concomitant]
     Dates: start: 20050101
  13. ASCORBIC ACID [Concomitant]
  14. GLUCOSAMIN [Concomitant]
  15. CHONDROITIN [Concomitant]

REACTIONS (5)
  - ABDOMINAL PAIN [None]
  - ABDOMINAL PAIN UPPER [None]
  - BLOOD GLUCOSE ABNORMAL [None]
  - DIARRHOEA [None]
  - STOMACH DISCOMFORT [None]
